FAERS Safety Report 6782524-5 (Version None)
Quarter: 2010Q2

REPORT INFORMATION
  Report Type: 
  Country: None (occurrence: None)
  Receive Date: 20100621
  Receipt Date: 20100611
  Transmission Date: 20101027
  Serious: Yes (Hospitalization)
  Sender: FDA-Public Use
  Company Number: ES-ABBOTT-10P-144-0648313-00

PATIENT
  Sex: Female
  Weight: 63 kg

DRUGS (4)
  1. KALETRA [Suspect]
     Indication: HEPATITIS C
     Route: 048
  2. KALETRA [Suspect]
     Indication: HIV INFECTION
  3. PEG-INTERFERON [Concomitant]
     Indication: DRUG USE FOR UNKNOWN INDICATION
     Dates: start: 20100215
  4. RIBAVIRIN [Concomitant]
     Indication: DRUG USE FOR UNKNOWN INDICATION
     Dates: start: 20100215

REACTIONS (2)
  - GINGIVAL BLEEDING [None]
  - THROMBOCYTOPENIA [None]
